FAERS Safety Report 5727285-3 (Version None)
Quarter: 2008Q2

REPORT INFORMATION
  Report Type: 
  Country: None (occurrence: None)
  Receive Date: 20080505
  Receipt Date: 20080422
  Transmission Date: 20081010
  Serious: Yes (Other)
  Sender: FDA-Public Use
  Company Number: DE-AMGEN-UK276019

PATIENT
  Sex: Female
  Weight: 60 kg

DRUGS (4)
  1. NEULASTA [Suspect]
     Indication: CHEMOTHERAPY
     Route: 065
  2. EPIRUBICIN [Concomitant]
     Route: 065
  3. PACLITAXEL [Concomitant]
     Route: 065
  4. CORTISONE [Concomitant]
     Route: 065

REACTIONS (7)
  - ABDOMINAL PAIN UPPER [None]
  - BONE PAIN [None]
  - CARDIAC DISORDER [None]
  - FEELING ABNORMAL [None]
  - FEELING HOT [None]
  - LYMPHADENOPATHY [None]
  - PLATELET COUNT DECREASED [None]
